FAERS Safety Report 10382233 (Version 2)
Quarter: 2014Q3

REPORT INFORMATION
  Report Type: Spontaneous
  Country: US (occurrence: US)
  Receive Date: 20140813
  Receipt Date: 20140813
  Transmission Date: 20150326
  Serious: Yes (Hospitalization, Disabling, Other)
  Sender: FDA-Public Use
  Company Number: US-009507513-2010SP034933

PATIENT
  Sex: Female
  Weight: 117.3 kg

DRUGS (2)
  1. NUVARING [Suspect]
     Active Substance: ETHINYL ESTRADIOL\ETONOGESTREL
     Indication: CONTRACEPTION
     Dates: start: 200604, end: 20080618
  2. ZYRTEC [Concomitant]
     Active Substance: CETIRIZINE HYDROCHLORIDE
     Indication: HYPERSENSITIVITY
     Dosage: 10 MG, QD
     Dates: start: 2004

REACTIONS (8)
  - Cerebral infarction [Recovering/Resolving]
  - Migraine [Unknown]
  - Subarachnoid haemorrhage [Recovering/Resolving]
  - Hypercoagulation [Unknown]
  - Generalised tonic-clonic seizure [Recovered/Resolved]
  - Cough [Recovering/Resolving]
  - Superior sagittal sinus thrombosis [Recovering/Resolving]
  - Sneezing [Recovering/Resolving]

NARRATIVE: CASE EVENT DATE: 2008
